FAERS Safety Report 5451247-7 (Version None)
Quarter: 2007Q3

REPORT INFORMATION
  Report Type: 
  Country: None (occurrence: None)
  Receive Date: 20070911
  Receipt Date: 20070911
  Transmission Date: 20080115
  Serious: Yes (Life-Threatening, Hospitalization)
  Sender: FDA-Public Use
  Company Number: None

PATIENT
  Age: 36 Year
  Sex: Female
  Weight: 60 kg

DRUGS (1)
  1. OMALIZUMAB [Suspect]
     Indication: ASTHMA
     Dosage: 300 MG Q4WK SQ
     Route: 058
     Dates: start: 20051115, end: 20070823

REACTIONS (4)
  - DYSPNOEA [None]
  - FACE OEDEMA [None]
  - URTICARIA [None]
  - WHEEZING [None]
